FAERS Safety Report 7959328-0 (Version None)
Quarter: 2011Q4

REPORT INFORMATION
  Report Type: 
  Country: None (occurrence: None)
  Receive Date: 20111206
  Receipt Date: 20111202
  Transmission Date: 20120403
  Serious: Yes (Other)
  Sender: FDA-Public Use
  Company Number: US-PFIZER INC-2010115952

PATIENT
  Sex: Female

DRUGS (3)
  1. ANTIVERT [Suspect]
     Dosage: UNK
  2. NORVASC [Suspect]
     Dosage: UNK
  3. LIPITOR [Suspect]
     Dosage: UNK

REACTIONS (3)
  - GLAUCOMA [None]
  - CATARACT [None]
  - OPTIC NERVE INJURY [None]
